FAERS Safety Report 7296306-1 (Version None)
Quarter: 2011Q1

REPORT INFORMATION
  Report Type: 
  Country: None (occurrence: None)
  Receive Date: 20110216
  Receipt Date: 20110208
  Transmission Date: 20110831
  Serious: Yes (Other)
  Sender: FDA-Public Use
  Company Number: CA-JNJFOC-20101204731

PATIENT
  Sex: Female
  Weight: 80 kg

DRUGS (2)
  1. REMICADE [Suspect]
     Dosage: 400 MG
     Route: 042
  2. REMICADE [Suspect]
     Indication: CROHN'S DISEASE
     Dosage: 400 MG
     Route: 042

REACTIONS (3)
  - DIARRHOEA [None]
  - WEIGHT DECREASED [None]
  - HAEMATOCHEZIA [None]
